FAERS Safety Report 5629870-6 (Version None)
Quarter: 2008Q1

REPORT INFORMATION
  Report Type: 
  Country: None (occurrence: None)
  Receive Date: 20080218
  Receipt Date: 20080212
  Transmission Date: 20080703
  Serious: Yes (Life-Threatening, Hospitalization)
  Sender: FDA-Public Use
  Company Number: FR-ASTRAZENECA-2007CG01446

PATIENT
  Age: 28371 Day
  Sex: Female
  Weight: 74 kg

DRUGS (5)
  1. DIPRIVAN [Suspect]
     Indication: ANAESTHESIA
     Route: 042
     Dates: start: 20070912, end: 20070912
  2. CEFAMANDOLE PANPHARMA [Suspect]
     Indication: ANTIBIOTIC PROPHYLAXIS
     Route: 042
     Dates: start: 20070912, end: 20070912
  3. CELOCURIN [Suspect]
     Indication: ANAESTHESIA
     Route: 042
     Dates: start: 20070912, end: 20070912
  4. HYPNOMIDATE [Suspect]
     Indication: ANAESTHESIA
     Route: 042
     Dates: start: 20070912, end: 20070912
  5. HYPNOMIDATE [Suspect]
     Route: 042
     Dates: start: 20070912, end: 20070912

REACTIONS (3)
  - ANAPHYLACTIC SHOCK [None]
  - BRONCHOSPASM [None]
  - ERYTHEMA [None]
